FAERS Safety Report 5476219-8 (Version None)
Quarter: 2007Q3

REPORT INFORMATION
  Report Type: 
  Country: None (occurrence: None)
  Receive Date: 20070904
  Receipt Date: 20070711
  Transmission Date: 20080115
  Serious: No
  Sender: FDA-Public Use
  Company Number: PHEH2007US09870

PATIENT
  Age: 69 Year
  Sex: Female
  Weight: 79.4 kg

DRUGS (1)
  1. ENABLEX [Suspect]
     Dosage: 7.5 MG, QD
     Dates: start: 20070711

REACTIONS (2)
  - DIZZINESS [None]
  - NAUSEA [None]
